FAERS Safety Report 13976825 (Version 1)
Quarter: 2017Q3

REPORT INFORMATION
  Report Type: Spontaneous
  Country: FR (occurrence: FR)
  Receive Date: 20170915
  Receipt Date: 20170915
  Transmission Date: 20171128
  Serious: Yes (Hospitalization)
  Sender: FDA-Public Use
  Company Number: FR-MERCK KGAA-2026432

PATIENT
  Age: 69 Year
  Sex: Male

DRUGS (1)
  1. NOVOTHYROX [Suspect]
     Active Substance: LEVOTHYROXINE SODIUM
     Indication: THYROID DISORDER
     Route: 048
     Dates: start: 2011

REACTIONS (4)
  - Tri-iodothyronine free abnormal [Not Recovered/Not Resolved]
  - Thyroxine free abnormal [Not Recovered/Not Resolved]
  - Hot flush [Not Recovered/Not Resolved]
  - Blood thyroid stimulating hormone abnormal [Not Recovered/Not Resolved]
